FAERS Safety Report 6901807-9 (Version None)
Quarter: 2010Q3

REPORT INFORMATION
  Report Type: 
  Country: None (occurrence: None)
  Receive Date: 20100803
  Receipt Date: 20080321
  Transmission Date: 20110219
  Serious: No
  Sender: FDA-Public Use
  Company Number: US-PFIZER INC-2008026496

PATIENT
  Sex: Male
  Weight: 94.3 kg

DRUGS (7)
  1. LYRICA [Suspect]
     Indication: SCIATIC NERVE NEUROPATHY
     Route: 048
     Dates: start: 20080311
  2. LISINOPRIL [Concomitant]
  3. METOPROLOL [Concomitant]
  4. BENICAR [Concomitant]
  5. VYTORIN [Concomitant]
  6. ACETYLSALICYLIC ACID SRT [Concomitant]
  7. VITAMIN TAB [Concomitant]

REACTIONS (3)
  - EJACULATION DISORDER [None]
  - FEELING JITTERY [None]
  - MALE SEXUAL DYSFUNCTION [None]
